FAERS Safety Report 24020907 (Version 1)
Quarter: 2024Q2

REPORT INFORMATION
  Report Type: Report from Study
  Country: CH (occurrence: CH)
  Receive Date: 20240627
  Receipt Date: 20240627
  Transmission Date: 20240715
  Serious: Yes (Hospitalization, Other)
  Sender: FDA-Public Use
  Company Number: CH-ABBVIE-5810054

PATIENT
  Sex: Male
  Weight: 137 kg

DRUGS (38)
  1. SKYRIZI [Suspect]
     Active Substance: RISANKIZUMAB-RZAA
     Indication: Psoriasis
     Route: 058
     Dates: start: 20230405, end: 20230503
  2. VANCOCIN [Concomitant]
     Active Substance: VANCOMYCIN HYDROCHLORIDE
     Indication: Infection
     Dosage: 1G
     Route: 042
  3. HERBALS [Concomitant]
     Active Substance: HERBALS
     Indication: Product used for unknown indication
     Dosage: CONSTIPATION SYRUP
  4. FUROSEMIDE [Concomitant]
     Active Substance: FUROSEMIDE
     Indication: Polyuria
     Dates: start: 202307, end: 202307
  5. ALBUTEROL SULFATE\IPRATROPIUM BROMIDE [Concomitant]
     Active Substance: ALBUTEROL SULFATE\IPRATROPIUM BROMIDE
     Indication: Product used for unknown indication
     Dosage: TIME INTERVAL: 0.33333333 DAYS: INHALATION SOLUTION 1+0.2MG/ML
     Route: 055
  6. DALTEPARIN [Concomitant]
     Active Substance: DALTEPARIN
     Indication: Anticoagulant therapy
     Dates: start: 202307, end: 202307
  7. SEROQUEL [Concomitant]
     Active Substance: QUETIAPINE FUMARATE
     Indication: Product used for unknown indication
  8. ENALAPRIL MALEATE [Concomitant]
     Active Substance: ENALAPRIL MALEATE
     Indication: Product used for unknown indication
     Route: 048
  9. MAGNESIUM ASPARTATE HYDROCHLORIDE [Concomitant]
     Active Substance: MAGNESIUM ASPARTATE HYDROCHLORIDE
     Indication: Product used for unknown indication
     Dosage: 1 POUCH, 10 MMOL
  10. URAPIDIL [Concomitant]
     Active Substance: URAPIDIL
     Indication: Hypertension
     Dates: start: 202307, end: 202307
  11. LISINOPRIL [Concomitant]
     Active Substance: LISINOPRIL
     Indication: Product used for unknown indication
     Route: 048
  12. METAMIZOLE [Concomitant]
     Active Substance: METAMIZOLE
     Indication: Product used for unknown indication
     Dosage: SINTETICA 1 G/2ML
     Route: 042
  13. AMLODIPINUM [Concomitant]
     Indication: Product used for unknown indication
     Route: 048
  14. ALDACTONE [Concomitant]
     Active Substance: SPIRONOLACTONE
     Indication: Product used for unknown indication
     Dosage: TIME INTERVAL: 0.33333333 DAYS: 1
     Route: 048
  15. ALDACTONE [Concomitant]
     Active Substance: SPIRONOLACTONE
     Indication: Product used for unknown indication
     Route: 048
  16. DEXMEDETOMIDINE [Concomitant]
     Active Substance: DEXMEDETOMIDINE
     Indication: Product used for unknown indication
     Dates: start: 202307, end: 202307
  17. INSULIN ASPART [Concomitant]
     Active Substance: INSULIN ASPART
     Indication: Type 2 diabetes mellitus
     Dosage: INSULIN NOVORAPID FLEXTOUCH
     Route: 058
  18. OLANZAPINE [Concomitant]
     Active Substance: OLANZAPINE
     Indication: Delirium
     Dates: end: 202307
  19. AMOXICILLIN\CLAVULANATE POTASSIUM [Concomitant]
     Active Substance: AMOXICILLIN\CLAVULANATE POTASSIUM
     Indication: Pyrexia
     Route: 042
     Dates: start: 20230712, end: 20230712
  20. AMOXICILLIN\CLAVULANATE POTASSIUM [Concomitant]
     Active Substance: AMOXICILLIN\CLAVULANATE POTASSIUM
     Indication: Pyrexia
     Route: 042
     Dates: start: 20230715
  21. MEROPENEM [Concomitant]
     Active Substance: MEROPENEM
     Indication: Infection
     Route: 042
  22. Imazol [Concomitant]
     Indication: Product used for unknown indication
     Dosage: IMAZOL CREAM 10+2.5MG/G
     Route: 003
  23. MOVICOL [Concomitant]
     Active Substance: POLYETHYLENE GLYCOL 3350\POTASSIUM CHLORIDE\SODIUM BICARBONATE\SODIUM CHLORIDE
     Indication: Product used for unknown indication
     Dosage: TIME INTERVAL: 0.33333333 DAYS: 1 PIECE
  24. LANTUS [Concomitant]
     Active Substance: INSULIN GLARGINE
     Indication: Type 2 diabetes mellitus
     Dosage: 100 E/ML
     Route: 058
  25. LANTUS [Concomitant]
     Active Substance: INSULIN GLARGINE
     Indication: Type 2 diabetes mellitus
     Dosage: 100 E/ML
     Route: 058
  26. ROSUVASTATIN CALCIUM [Concomitant]
     Active Substance: ROSUVASTATIN CALCIUM
     Indication: Product used for unknown indication
     Route: 048
  27. TORSEMIDE [Concomitant]
     Active Substance: TORSEMIDE
     Indication: Product used for unknown indication
     Route: 048
  28. DAFALGAN [Concomitant]
     Active Substance: ACETAMINOPHEN
     Indication: Product used for unknown indication
     Dosage: 1/2 PIECE
     Route: 048
  29. MIDAZOLAM [Concomitant]
     Active Substance: MIDAZOLAM
     Indication: Product used for unknown indication
     Dates: start: 20230712, end: 20230712
  30. PROPOFOL [Concomitant]
     Active Substance: PROPOFOL
     Indication: Product used for unknown indication
     Dates: start: 202307, end: 202307
  31. ASPIRIN [Concomitant]
     Active Substance: ASPIRIN
     Indication: Product used for unknown indication
     Route: 048
  32. CIGNOLIN [Concomitant]
     Indication: Psoriasis
  33. GOSERELIN [Concomitant]
     Active Substance: GOSERELIN
     Indication: Prostate cancer
  34. VICTOZA [Concomitant]
     Active Substance: LIRAGLUTIDE
     Indication: Obesity
  35. PULMICORT TURBUHALER [Concomitant]
     Active Substance: BUDESONIDE
     Indication: Product used for unknown indication
     Dosage: 0.25MG/ML
     Route: 055
  36. TORSEMIDE [Concomitant]
     Active Substance: TORSEMIDE
     Indication: Polyuria
     Dates: start: 202307, end: 202307
  37. CHOLECALCIFEROL [Concomitant]
     Active Substance: CHOLECALCIFEROL
     Indication: Product used for unknown indication
     Dosage: 4000 IU/ML
     Route: 048
  38. XIGDUO XR [Concomitant]
     Active Substance: DAPAGLIFLOZIN PROPANEDIOL\METFORMIN HYDROCHLORIDE
     Indication: Product used for unknown indication
     Dosage: 1 PC, 5 MG/1000 MG
     Route: 048

REACTIONS (53)
  - Sepsis [Recovered/Resolved]
  - Hypoglycaemia [Unknown]
  - Aggression [Unknown]
  - Hypoxia [Unknown]
  - Erythema [Unknown]
  - Papilloma [Unknown]
  - Pulmonary oedema [Unknown]
  - Escherichia urinary tract infection [Unknown]
  - Gait disturbance [Unknown]
  - Restlessness [Unknown]
  - Tachypnoea [Unknown]
  - Panniculitis [Unknown]
  - Hepatic steatosis [Unknown]
  - Diabetic nephropathy [Unknown]
  - Hypoalbuminaemia [Unknown]
  - Pneumonia aspiration [Unknown]
  - Urinary incontinence [Unknown]
  - Acute respiratory failure [Unknown]
  - Visual impairment [Unknown]
  - Streptococcal bacteraemia [Unknown]
  - Pyrexia [Unknown]
  - Pyrexia [Unknown]
  - Abnormal behaviour [Unknown]
  - Inflammatory marker increased [Unknown]
  - Psychomotor hyperactivity [Unknown]
  - Onychomycosis [Unknown]
  - Beta haemolytic streptococcal infection [Unknown]
  - Pain in extremity [Unknown]
  - Beta haemolytic streptococcal infection [Unknown]
  - Pain [Unknown]
  - Fall [Unknown]
  - Disorientation [Unknown]
  - Arterial disorder [Unknown]
  - Feeling hot [Unknown]
  - Fungal infection [Unknown]
  - Delirium [Unknown]
  - Peripheral venous disease [Unknown]
  - Erysipelas [Unknown]
  - Agitation [Unknown]
  - Endocarditis [Unknown]
  - Syncope [Unknown]
  - Gastrointestinal angiodysplasia [Unknown]
  - Disease risk factor [Unknown]
  - Deafness [Unknown]
  - Dermatitis [Unknown]
  - Craniocerebral injury [Unknown]
  - Malnutrition [Unknown]
  - Vitamin D deficiency [Unknown]
  - Dementia [Unknown]
  - Polyneuropathy [Unknown]
  - Hypoalbuminaemia [Unknown]
  - Microalbuminuria [Unknown]
  - Hepatosplenomegaly [Unknown]

NARRATIVE: CASE EVENT DATE: 20230101
